FAERS Safety Report 17723066 (Version 1)
Quarter: 2020Q2

REPORT INFORMATION
  Report Type: Spontaneous
  Country: US (occurrence: US)
  Receive Date: 20200429
  Receipt Date: 20200429
  Transmission Date: 20200714
  Serious: No
  Sender: FDA-Public Use
  Company Number: US-FARMAPROD-202001-0022

PATIENT
  Sex: Female

DRUGS (3)
  1. OXERVATE [Suspect]
     Active Substance: CENEGERMIN-BKBJ
     Indication: NEUROTROPHIC KERATOPATHY
     Route: 047
  2. RESTASIS [Concomitant]
     Active Substance: CYCLOSPORINE
     Indication: DRY EYE
  3. RESTASIS [Concomitant]
     Active Substance: CYCLOSPORINE
     Indication: DRY EYE
     Dosage: CONTINUES TO TAKE IT

REACTIONS (5)
  - Drug ineffective [Not Recovered/Not Resolved]
  - Ocular hyperaemia [Unknown]
  - Treatment noncompliance [Unknown]
  - Eye pain [Unknown]
  - Eye swelling [Unknown]
